FAERS Safety Report 8161626 (Version 2)
Quarter: 2013Q2

REPORT INFORMATION
  Report Type: Spontaneous
  Country: JP (occurrence: JP)
  Receive Date: 20110929
  Receipt Date: 20130402
  Transmission Date: 20140414
  Serious: Yes (Death, Hospitalization)
  Sender: FDA-Public Use
  Company Number: JP-EISAI INC-E2090-01683-SPO-JP

PATIENT
  Sex: Male
  Weight: 53 kg

DRUGS (7)
  1. EXCEGRAN [Suspect]
     Indication: EPILEPSY
     Route: 048
     Dates: start: 20110512
  2. EXCEGRAN [Suspect]
     Indication: CEREBRAL PALSY
  3. LOXONIN [Suspect]
     Indication: PRODUCT USED FOR UNKNOWN INDICATION
     Dosage: 60 MG X 1 DOSE
     Route: 048
     Dates: start: 20110528, end: 20110528
  4. TEGRETOL [Concomitant]
     Dosage: 400 MG/DAILY
     Route: 048
     Dates: start: 20071113
  5. HYDANTOL F [Concomitant]
     Dosage: UNKNOWN
     Route: 048
  6. LIPITOR [Concomitant]
     Dosage: 10 MG/DAILY
     Route: 048
  7. PLETAL [Concomitant]
     Dosage: 200 MG/DAILY
     Route: 048

REACTIONS (2)
  - Sepsis [Fatal]
  - Toxic epidermal necrolysis [Unknown]
